FAERS Safety Report 13620231 (Version 1)
Quarter: 2017Q2

REPORT INFORMATION
  Report Type: Spontaneous
  Country: DE (occurrence: DE)
  Receive Date: 20170607
  Receipt Date: 20170607
  Transmission Date: 20170830
  Serious: Yes (Other)
  Sender: FDA-Public Use
  Company Number: DE-GLAXOSMITHKLINE-DE2017GSK083097

PATIENT
  Age: 63 Year
  Sex: Female

DRUGS (14)
  1. SIMVASTATIN. [Concomitant]
     Active Substance: SIMVASTATIN
     Dosage: 40 MG, 1D
     Route: 048
  2. METOPROLOL. [Concomitant]
     Active Substance: METOPROLOL
     Dosage: 47.5 MG, 1D
  3. BUPROPION. [Suspect]
     Active Substance: BUPROPION
     Dosage: 300 MG, 1D
     Route: 048
     Dates: start: 20161130, end: 20161207
  4. LEVOTHYROXIN [Concomitant]
     Active Substance: LEVOTHYROXINE
     Dosage: 125 UNK, 1D
     Route: 048
     Dates: start: 201508
  5. MIRTAZAPIN [Suspect]
     Active Substance: MIRTAZAPINE
     Indication: PRODUCT USED FOR UNKNOWN INDICATION
     Dosage: 7.5 MG, 1D
     Route: 048
     Dates: start: 20161128, end: 20161128
  6. ARIPIPRAZOLE. [Concomitant]
     Active Substance: ARIPIPRAZOLE
     Dosage: 5 MG, 1D
     Dates: start: 201508
  7. METAMIZOL [Concomitant]
     Active Substance: METAMIZOLE SODIUM
     Dosage: 2250 MG, 1D
     Route: 048
  8. TILIDIN [Concomitant]
     Active Substance: NALOXONE HYDROCHLORIDE\TILIDINE HYDROCHLORIDE
     Dosage: UNK
  9. BUPROPION. [Suspect]
     Active Substance: BUPROPION
     Indication: PRODUCT USED FOR UNKNOWN INDICATION
     Dosage: 150 MG, 1D
     Route: 048
     Dates: start: 20161117, end: 20161129
  10. MIRTAZAPIN [Suspect]
     Active Substance: MIRTAZAPINE
     Dosage: 15 MG, 1D
     Route: 048
     Dates: start: 20161129
  11. PROTHIPENDYL [Concomitant]
     Active Substance: PROTHIPENDYL
     Dosage: 40 MG, 1D
     Dates: start: 201508
  12. ACETYLSALICYLIC ACID [Concomitant]
     Active Substance: ASPIRIN
     Dosage: 100 MG, 1D
  13. BUPROPION. [Suspect]
     Active Substance: BUPROPION
     Dosage: 150 MG, 1D
     Route: 048
     Dates: start: 20161208
  14. QUETIAPINE. [Suspect]
     Active Substance: QUETIAPINE
     Indication: PRODUCT USED FOR UNKNOWN INDICATION
     Dosage: 75 MG, 1D
     Route: 048
     Dates: start: 20161201, end: 20161206

REACTIONS (2)
  - Transaminases increased [Recovered/Resolved]
  - Hepatitis toxic [Unknown]

NARRATIVE: CASE EVENT DATE: 20161206
